FAERS Safety Report 23333887 (Version 1)
Quarter: 2023Q4

REPORT INFORMATION
  Report Type: Report from Study
  Country: GB (occurrence: GB)
  Receive Date: 20231223
  Receipt Date: 20231223
  Transmission Date: 20240109
  Serious: Yes (Other)
  Sender: FDA-Public Use
  Company Number: GB-UCBSA-2023003047

PATIENT
  Age: 32 Year
  Sex: Female

DRUGS (2)
  1. CERTOLIZUMAB PEGOL [Suspect]
     Active Substance: CERTOLIZUMAB PEGOL
     Indication: Psoriatic arthropathy
     Dosage: 400 MILLIGRAM, EV 2 WEEKS(QOW)
     Route: 058
     Dates: start: 20230118
  2. HAYFEVER [Concomitant]
     Indication: Blood pressure increased
     Dosage: UNK

REACTIONS (5)
  - Psoriatic arthropathy [Unknown]
  - Blood pressure increased [Recovered/Resolved]
  - Urticaria [Unknown]
  - Erythema [Unknown]
  - Drug hypersensitivity [Unknown]

NARRATIVE: CASE EVENT DATE: 20230118
